FAERS Safety Report 6712661-2 (Version None)
Quarter: 2010Q2

REPORT INFORMATION
  Report Type: 
  Country: None (occurrence: None)
  Receive Date: 20100504
  Receipt Date: 20100504
  Transmission Date: 20101027
  Serious: No
  Sender: FDA-Public Use
  Company Number: None

PATIENT
  Sex: Male

DRUGS (3)
  1. MORPHINE [Suspect]
     Indication: HEADACHE
     Dates: start: 20100215, end: 20100215
  2. ONDANSETRON [Suspect]
     Indication: NAUSEA
  3. ONDANSETRON [Suspect]
     Indication: VOMITING

REACTIONS (2)
  - PRURITUS [None]
  - RASH [None]
